FAERS Safety Report 23844327 (Version 1)
Quarter: 2024Q2

REPORT INFORMATION
  Report Type: Spontaneous
  Country: JP (occurrence: JP)
  Receive Date: 20240510
  Receipt Date: 20240510
  Transmission Date: 20240715
  Serious: Yes (Death, Hospitalization, Other)
  Sender: FDA-Public Use
  Company Number: JP-ELI_LILLY_AND_COMPANY-JP202405004048

PATIENT
  Age: 53 Year
  Sex: Female
  Weight: 65 kg

DRUGS (19)
  1. GEMZAR [Suspect]
     Active Substance: GEMCITABINE HYDROCHLORIDE
     Indication: Ovarian cancer
     Dosage: 1600 MG, DAILY
     Route: 041
     Dates: start: 20230905
  2. ASTEMIZOLE [Concomitant]
     Active Substance: ASTEMIZOLE
     Route: 048
  3. LIPIDIL [Concomitant]
     Active Substance: FENOFIBRATE
     Route: 048
  4. MAGNESIUM OXIDE [Concomitant]
     Active Substance: MAGNESIUM OXIDE
     Route: 048
  5. AMLODIPINE BESYLATE [Concomitant]
     Active Substance: AMLODIPINE BESYLATE
     Route: 048
  6. LOXOPROFEN [Concomitant]
     Active Substance: LOXOPROFEN
     Route: 048
  7. REBAMIPIDE [Concomitant]
     Active Substance: REBAMIPIDE
     Route: 048
  8. AZ NIPRO PHARMA [Concomitant]
     Route: 049
  9. TRIAMCINOLONE ACETONIDE [Concomitant]
     Active Substance: TRIAMCINOLONE ACETONIDE
     Route: 049
  10. LIDOCAINE [Concomitant]
     Active Substance: LIDOCAINE
     Route: 062
  11. PREGABALIN [Concomitant]
     Active Substance: PREGABALIN
     Route: 048
  12. VALACYCLOVIR HYDROCHLORIDE [Concomitant]
     Active Substance: VALACYCLOVIR HYDROCHLORIDE
     Route: 048
  13. BETAMETHASONE VALERATE [Concomitant]
     Active Substance: BETAMETHASONE VALERATE
     Route: 062
  14. HEPARINOID [Concomitant]
     Route: 062
  15. ZINC ACETATE ANHYDROUS [Concomitant]
     Active Substance: ZINC ACETATE ANHYDROUS
     Route: 048
  16. LIDOCAINE\TRIBENOSIDE [Concomitant]
     Active Substance: LIDOCAINE\TRIBENOSIDE
     Route: 062
  17. GEFAPIXANT CITRATE [Concomitant]
     Active Substance: GEFAPIXANT CITRATE
     Route: 048
  18. ESZOPICLONE [Concomitant]
     Active Substance: ESZOPICLONE
     Route: 048
  19. DEXAMETHASONE SODIUM PHOSPHATE [Concomitant]
     Active Substance: DEXAMETHASONE PHOSPHATE\DEXAMETHASONE SODIUM PHOSPHATE
     Route: 041

REACTIONS (4)
  - Death [Fatal]
  - Hepatic function abnormal [Recovering/Resolving]
  - Malignant neoplasm progression [Unknown]
  - Abdominal distension [Unknown]

NARRATIVE: CASE EVENT DATE: 20230909
